FAERS Safety Report 11156624 (Version 2)
Quarter: 2015Q2

REPORT INFORMATION
  Report Type: Spontaneous
  Country: ES (occurrence: ES)
  Receive Date: 20150602
  Receipt Date: 20150618
  Transmission Date: 20150821
  Serious: Yes (Hospitalization, Other)
  Sender: FDA-Public Use
  Company Number: ES-ELI_LILLY_AND_COMPANY-ES201505003192

PATIENT
  Age: 68 Year
  Sex: Male

DRUGS (4)
  1. ALIMTA [Suspect]
     Active Substance: PEMETREXED DISODIUM
     Indication: LUNG ADENOCARCINOMA STAGE III
     Dosage: UNK
     Route: 065
     Dates: start: 20150424
  2. CYANOCOBALAMIN. [Concomitant]
     Active Substance: CYANOCOBALAMIN
     Indication: SUPPLEMENTATION THERAPY
     Route: 065
  3. CISPLATIN. [Concomitant]
     Active Substance: CISPLATIN
     Indication: LUNG ADENOCARCINOMA STAGE III
     Route: 065
  4. FOLIC ACID. [Concomitant]
     Active Substance: FOLIC ACID
     Indication: SUPPLEMENTATION THERAPY
     Dosage: UNK
     Route: 065

REACTIONS (2)
  - Pleural effusion [Recovered/Resolved]
  - Pneumonitis [Recovered/Resolved]

NARRATIVE: CASE EVENT DATE: 20150424
